FAERS Safety Report 18739037 (Version 2)
Quarter: 2021Q1

REPORT INFORMATION
  Report Type: Report from Study
  Country: GB (occurrence: GB)
  Receive Date: 20210114
  Receipt Date: 20210208
  Transmission Date: 20210419
  Serious: Yes (Other)
  Sender: FDA-Public Use
  Company Number: NVSC2021GB006420

PATIENT
  Sex: Male

DRUGS (1)
  1. ERELZI [Suspect]
     Active Substance: ETANERCEPT-SZZS
     Indication: ANKYLOSING SPONDYLITIS
     Dosage: 50 MG, QW
     Route: 058
     Dates: start: 20181018

REACTIONS (2)
  - COVID-19 [Recovering/Resolving]
  - Product dose omission issue [Unknown]
